FAERS Safety Report 7816550-1 (Version None)
Quarter: 2011Q4

REPORT INFORMATION
  Report Type: 
  Country: None (occurrence: None)
  Receive Date: 20111017
  Receipt Date: 20111010
  Transmission Date: 20120403
  Serious: Yes (Other)
  Sender: FDA-Public Use
  Company Number: GB-PFIZER INC-2011196117

PATIENT
  Age: 75 Year
  Sex: Female

DRUGS (1)
  1. XALATAN [Suspect]
     Dosage: DAILY
     Route: 047
     Dates: end: 20110804

REACTIONS (4)
  - OCULAR HYPERAEMIA [None]
  - INTRAOCULAR PRESSURE INCREASED [None]
  - REACTION TO DRUG EXCIPIENTS [None]
  - EYE PAIN [None]
